FAERS Safety Report 5585210-2 (Version None)
Quarter: 2008Q1

REPORT INFORMATION
  Report Type: 
  Country: None (occurrence: None)
  Receive Date: 20080109
  Receipt Date: 20071231
  Transmission Date: 20080703
  Serious: Yes (Other)
  Sender: FDA-Public Use
  Company Number: PHFR2007GB03543

PATIENT
  Age: 46 Year
  Sex: Male
  Weight: 90 kg

DRUGS (5)
  1. CLOZARIL [Suspect]
     Indication: SCHIZOPHRENIA
     Dosage: 250MG/DAY
     Route: 048
     Dates: start: 20070815
  2. EPILIM [Concomitant]
     Indication: BIPOLAR DISORDER
     Dosage: 1200MG/DAY
     Route: 048
  3. LANSOPRAZOLE [Concomitant]
     Route: 065
  4. NIMODIPINE [Concomitant]
     Indication: BIPOLAR DISORDER
     Route: 048
  5. LORAZEPAM [Concomitant]
     Indication: HYPOMANIA
     Dosage: 6MG/DAY
     Route: 048

REACTIONS (3)
  - BLOOD CHOLESTEROL INCREASED [None]
  - DIABETES MELLITUS [None]
  - GASTRIC DISORDER [None]
